FAERS Safety Report 25622269 (Version 1)
Quarter: 2025Q3

REPORT INFORMATION
  Report Type: Spontaneous
  Country: US (occurrence: US)
  Receive Date: 20250730
  Receipt Date: 20250730
  Transmission Date: 20251021
  Serious: Yes (Hospitalization, Other)
  Sender: MYLAN
  Company Number: US-MYLANLABS-2025M1062757

PATIENT
  Age: 33 Year
  Sex: Female

DRUGS (7)
  1. LEVETIRACETAM [Suspect]
     Active Substance: LEVETIRACETAM
     Indication: Epilepsy
     Dosage: 500 MILLIGRAM, BID
  2. LACOSAMIDE [Interacting]
     Active Substance: LACOSAMIDE
     Indication: Epilepsy
  3. LACOSAMIDE [Interacting]
     Active Substance: LACOSAMIDE
     Dosage: UNK, BID; UP TITRATED TO 150 MG TWICE A DAY
  4. LACOSAMIDE [Interacting]
     Active Substance: LACOSAMIDE
     Dosage: 200 MILLIGRAM, BID
  5. CENOBAMATE [Interacting]
     Active Substance: CENOBAMATE
     Indication: Epilepsy
  6. ESLICARBAZEPINE [Concomitant]
     Active Substance: ESLICARBAZEPINE
     Indication: Epilepsy
     Dosage: 400 MILLIGRAM, QD
  7. SERTRALINE [Concomitant]
     Active Substance: SERTRALINE HYDROCHLORIDE
     Indication: Depression
     Dosage: 50 MILLIGRAM, QD

REACTIONS (8)
  - Drug ineffective [Unknown]
  - Suicidal ideation [Unknown]
  - Depression [Unknown]
  - Idiosyncratic drug reaction [Recovering/Resolving]
  - Throat irritation [Recovering/Resolving]
  - Swelling face [Recovering/Resolving]
  - Rash [Recovering/Resolving]
  - Drug interaction [Recovering/Resolving]
